FAERS Safety Report 6318677-2 (Version None)
Quarter: 2009Q3

REPORT INFORMATION
  Report Type: 
  Country: None (occurrence: None)
  Receive Date: 20090821
  Receipt Date: 20090813
  Transmission Date: 20100115
  Serious: Yes (Hospitalization)
  Sender: FDA-Public Use
  Company Number: DE-AMGEN-US328058

PATIENT
  Sex: Male
  Weight: 77 kg

DRUGS (7)
  1. ENBREL [Suspect]
     Indication: RHEUMATOID ARTHRITIS
     Route: 058
     Dates: start: 20081001, end: 20081206
  2. ASPIRIN [Concomitant]
     Indication: CORONARY ARTERY DISEASE
     Route: 048
     Dates: start: 20070101
  3. METOPROLOL [Concomitant]
     Indication: HYPERTENSION
     Route: 048
     Dates: start: 20070101
  4. PREDNISOLONE [Concomitant]
     Indication: RHEUMATOID ARTHRITIS
     Route: 058
     Dates: start: 20080201, end: 20081114
  5. PREDNISOLONE [Concomitant]
     Route: 048
     Dates: start: 20081115, end: 20081201
  6. PREDNISOLONE [Concomitant]
     Route: 048
     Dates: start: 20081201
  7. METEX [Concomitant]
     Indication: RHEUMATOID ARTHRITIS
     Route: 058
     Dates: start: 20080501

REACTIONS (3)
  - DYSPNOEA [None]
  - RESTLESSNESS [None]
  - TREMOR [None]
